FAERS Safety Report 9692307 (Version 1)
Quarter: 2013Q4

REPORT INFORMATION
  Report Type: Spontaneous
  Country: ES (occurrence: ES)
  Receive Date: 20131118
  Receipt Date: 20131118
  Transmission Date: 20140711
  Serious: Yes (Other)
  Sender: FDA-Public Use
  Company Number: ES-SHIRE-ALL1-2013-07827

PATIENT
  Sex: Male

DRUGS (2)
  1. MEZAVANT [Suspect]
     Indication: PRODUCT USED FOR UNKNOWN INDICATION
     Dosage: 4.8 G, UNKNOWN
     Route: 048
  2. MEZAVANT [Suspect]
     Dosage: 2.4 G, UNKNOWN
     Route: 048

REACTIONS (1)
  - Haemorrhage [Unknown]
